FAERS Safety Report 9281540 (Version 1)
Quarter: 2013Q2

REPORT INFORMATION
  Report Type: Spontaneous
  Country: US (occurrence: US)
  Receive Date: 20130509
  Receipt Date: 20130509
  Transmission Date: 20140414
  Serious: Yes (Hospitalization)
  Sender: FDA-Public Use
  Company Number: US-BAYER-2013-055401

PATIENT
  Age: 50 Year
  Sex: Female
  Weight: 59 kg

DRUGS (2)
  1. ALKA-SELTZER PLUS SPARKLING ORIGINAL COLD FORMULA [Suspect]
     Indication: INFLUENZA
     Dosage: 2 DF, BID
     Route: 048
     Dates: start: 20130401, end: 20130404
  2. ALKA-SELTZER PLUS SPARKLING ORIGINAL COLD FORMULA [Suspect]
     Indication: INFLUENZA
     Dosage: ONR OR THE OTHER , BID
     Route: 048
     Dates: start: 20130401, end: 20130404

REACTIONS (4)
  - Gastritis [Recovered/Resolved]
  - Gastric ulcer haemorrhage [None]
  - Faeces discoloured [None]
  - Gastrointestinal haemorrhage [None]
